FAERS Safety Report 14951080 (Version 1)
Quarter: 2018Q2

REPORT INFORMATION
  Report Type: Spontaneous
  Country: US (occurrence: US)
  Receive Date: 20180508
  Receipt Date: 20180508
  Transmission Date: 20180711
  Serious: No
  Sender: FDA-Public Use
  Company Number: None

PATIENT
  Age: 70 Year
  Sex: Female

DRUGS (1)
  1. APOKYN [Suspect]
     Active Substance: APOMORPHINE HYDROCHLORIDE
     Dosage: ?          OTHER FREQUENCY:UP TO 5 TIMES;?
     Route: 058

REACTIONS (3)
  - Injection site erythema [None]
  - Injection site haemorrhage [None]
  - Nausea [None]

NARRATIVE: CASE EVENT DATE: 20180508
